FAERS Safety Report 4478523-9 (Version None)
Quarter: 2004Q4

REPORT INFORMATION
  Report Type: 
  Country: None (occurrence: None)
  Receive Date: 20041013
  Receipt Date: 20040928
  Transmission Date: 20050328
  Serious: Yes (Other)
  Sender: FDA-Public Use
  Company Number: 236073

PATIENT
  Age: 55 Year
  Sex: Male

DRUGS (3)
  1. PENFILL 30R CHU (INSULIN HUMAN) SUSPENSION FOR INJECTION, 100IU/ML [Suspect]
     Indication: DIABETES MELLITUS
     Dosage: 36 IU, QD, SUBCUTANEOUS
     Route: 058
     Dates: start: 20040129
  2. ALOSENN (TARAXACUM OFFICINALE, SENNA LEAF, SENNA FRUIT, RUBIA ROOT TIN [Concomitant]
  3. SENNOSIDE A (SENNOSIDE A) [Concomitant]

REACTIONS (2)
  - HEPATITIS [None]
  - PANCREATIC CARCINOMA [None]
